FAERS Safety Report 26179226 (Version 1)
Quarter: 2025Q4

REPORT INFORMATION
  Report Type: Spontaneous
  Country: US (occurrence: None)
  Receive Date: 20251218
  Receipt Date: 20251218
  Transmission Date: 20260118
  Serious: Yes (Hospitalization)
  Sender: FDA-CTU
  Company Number: None

PATIENT
  Sex: Male

DRUGS (1)
  1. HYRIMOZ [Suspect]
     Active Substance: ADALIMUMAB-ADAZ
     Indication: Psoriasis
     Dosage: OTHER FREQUENCY : EVERY 14 DAYS;
     Route: 058

REACTIONS (3)
  - Histoplasmosis [None]
  - Blastomycosis [None]
  - Therapy interrupted [None]
